FAERS Safety Report 10917176 (Version 2)
Quarter: 2015Q2

REPORT INFORMATION
  Report Type: Spontaneous
  Country: US (occurrence: US)
  Receive Date: 20150316
  Receipt Date: 20150413
  Transmission Date: 20150821
  Serious: Yes (Other)
  Sender: FDA-Public Use
  Company Number: PHHY2013US164347

PATIENT
  Age: 50 Year
  Sex: Female

DRUGS (14)
  1. BACLOFEN INTRATHECAL [Suspect]
     Active Substance: BACLOFEN
     Dosage: 54 MG, QD
     Route: 037
  2. BACLOFEN INTRATHECAL [Suspect]
     Active Substance: BACLOFEN
     Indication: PAIN
     Dosage: UNK
     Route: 037
  3. BACLOFEN INTRATHECAL [Suspect]
     Active Substance: BACLOFEN
     Dosage: 50.28 MG, QD
     Route: 037
  4. BACLOFEN INTRATHECAL [Suspect]
     Active Substance: BACLOFEN
     Dosage: 225.0 MCG AND 49.46 MCG PER DAY
     Route: 037
  5. DILAUDID [Suspect]
     Active Substance: HYDROMORPHONE HYDROCHLORIDE
     Indication: PAIN
     Dosage: 6 MG, QD WITH 4 MG OF RESERVE
     Route: 037
  6. DILAUDID [Suspect]
     Active Substance: HYDROMORPHONE HYDROCHLORIDE
     Dosage: 6.595 MG, QD
     Route: 037
  7. DILAUDID [Suspect]
     Active Substance: HYDROMORPHONE HYDROCHLORIDE
     Dosage: 7 MG, QD
     Route: 037
  8. BACLOFEN INTRATHECAL [Suspect]
     Active Substance: BACLOFEN
     Dosage: 0.3 UG, QD
     Route: 037
  9. VANCOMYCIN [Suspect]
     Active Substance: VANCOMYCIN
     Indication: PRODUCT USED FOR UNKNOWN INDICATION
     Route: 065
  10. HEROIN [Suspect]
     Active Substance: DIACETYLMORPHINE
     Indication: PRODUCT USED FOR UNKNOWN INDICATION
     Route: 065
  11. DILAUDID [Suspect]
     Active Substance: HYDROMORPHONE HYDROCHLORIDE
     Dosage: 6.736 MG, QD OF 30 MG/ML
     Route: 037
  12. VICODIN [Suspect]
     Active Substance: ACETAMINOPHEN\HYDROCODONE BITARTRATE
     Indication: PRODUCT USED FOR UNKNOWN INDICATION
     Route: 065
  13. PERCOCET [Suspect]
     Active Substance: ACETAMINOPHEN\OXYCODONE HYDROCHLORIDE
     Indication: PRODUCT USED FOR UNKNOWN INDICATION
     Dosage: 10 MG, UNK
     Route: 065
  14. KLONOPIN [Suspect]
     Active Substance: CLONAZEPAM
     Indication: AGORAPHOBIA
     Dosage: 2-3 MG, QD
     Route: 065

REACTIONS (35)
  - Fall [Unknown]
  - Abdominal distension [Unknown]
  - Hypoaesthesia [Unknown]
  - Visual impairment [Unknown]
  - Weight increased [Unknown]
  - Implant site swelling [Unknown]
  - Breakthrough pain [Unknown]
  - Abdominal pain upper [Unknown]
  - Dysstasia [Unknown]
  - Diarrhoea [Unknown]
  - Feeling abnormal [Unknown]
  - Wound [Unknown]
  - Spinal disorder [Unknown]
  - Excoriation [Unknown]
  - Road traffic accident [Unknown]
  - Arthritis [Unknown]
  - Drug abuse [Unknown]
  - Pain [Unknown]
  - Intervertebral disc protrusion [Unknown]
  - Muscular weakness [Unknown]
  - Performance status decreased [Unknown]
  - Implant site extravasation [Unknown]
  - Neck pain [Unknown]
  - Pain in extremity [Unknown]
  - No therapeutic response [Unknown]
  - Condition aggravated [Unknown]
  - Local swelling [Unknown]
  - Cerebrospinal fluid leakage [Unknown]
  - Back pain [Unknown]
  - Tension [Unknown]
  - Implant site infection [Unknown]
  - Overdose [Unknown]
  - Staphylococcal infection [Unknown]
  - Weight decreased [Unknown]
  - Unevaluable event [Unknown]

NARRATIVE: CASE EVENT DATE: 201402
